FAERS Safety Report 7807900-0 (Version None)
Quarter: 2011Q4

REPORT INFORMATION
  Report Type: 
  Country: None (occurrence: None)
  Receive Date: 20111011
  Receipt Date: 20111006
  Transmission Date: 20120403
  Serious: No
  Sender: FDA-Public Use
  Company Number: US-BAYER-2011-097001

PATIENT
  Age: 69 Year
  Sex: Female

DRUGS (2)
  1. ULTRAVIST 150 [Suspect]
     Indication: COMPUTERISED TOMOGRAM
     Dosage: 50 ML, ONCE
     Dates: start: 20111004, end: 20111004
  2. ULTRAVIST 150 [Suspect]
     Indication: PULMONARY EMBOLISM

REACTIONS (1)
  - URTICARIA [None]
